FAERS Safety Report 13459404 (Version 1)
Quarter: 2017Q2

REPORT INFORMATION
  Report Type: Report from Study
  Country: US (occurrence: US)
  Receive Date: 20170419
  Receipt Date: 20170419
  Transmission Date: 20170830
  Serious: Yes (Other)
  Sender: FDA-Public Use
  Company Number: US-ACTELION-A-US2017-152749

PATIENT
  Age: 80 Year
  Sex: Female

DRUGS (10)
  1. DULCOLAX NOS [Concomitant]
     Active Substance: BISACODYL OR DOCUSATE SODIUM
  2. BIOTIN [Concomitant]
     Active Substance: BIOTIN
  3. TORSEMIDE. [Concomitant]
     Active Substance: TORSEMIDE
  4. CRANBERRY. [Concomitant]
     Active Substance: CRANBERRY
  5. ELIQUIS [Concomitant]
     Active Substance: APIXABAN
  6. ASA [Concomitant]
     Active Substance: ASPIRIN
  7. OPSUMIT [Suspect]
     Active Substance: MACITENTAN
     Indication: PULMONARY ARTERIAL HYPERTENSION
     Dosage: 10 MG, QD
     Route: 048
     Dates: start: 20160403
  8. TYLENOL [Concomitant]
     Active Substance: ACETAMINOPHEN
  9. SPIRONOLACTONE. [Concomitant]
     Active Substance: SPIRONOLACTONE
  10. DILTIAZEM. [Concomitant]
     Active Substance: DILTIAZEM

REACTIONS (1)
  - Abscess limb [Not Recovered/Not Resolved]

NARRATIVE: CASE EVENT DATE: 20170410
